FAERS Safety Report 4298421-3 (Version None)
Quarter: 2004Q1

REPORT INFORMATION
  Report Type: 
  Country: None (occurrence: None)
  Receive Date: 20040218
  Receipt Date: 20030715
  Transmission Date: 20041129
  Serious: Yes (Other)
  Sender: FDA-Public Use
  Company Number: US-BRISTOL-MYERS SQUIBB COMPANY-12325411

PATIENT
  Age: 48 Year
  Sex: Female

DRUGS (14)
  1. STADOL [Suspect]
     Indication: MIGRAINE
     Route: 045
     Dates: start: 19980106
  2. OXYCONTIN [Suspect]
  3. THORAZINE [Concomitant]
  4. ROXILOX [Concomitant]
  5. PHENERGAN [Concomitant]
  6. ACETAMINOPHEN W/ PROPOXYPHENE HCL [Concomitant]
  7. BUTALBITAL COMPOUND [Concomitant]
  8. SKELAXIN [Concomitant]
  9. PROPACET 100 [Concomitant]
  10. DEMEROL [Concomitant]
  11. WELLBUTRIN [Concomitant]
  12. VALIUM [Concomitant]
  13. LORCET-HD [Concomitant]
  14. DARVOCET [Concomitant]

REACTIONS (1)
  - DEPENDENCE [None]
